FAERS Safety Report 13101259 (Version 2)
Quarter: 2017Q1

REPORT INFORMATION
  Report Type: Spontaneous
  Country: ES (occurrence: ES)
  Receive Date: 20170110
  Receipt Date: 20170116
  Transmission Date: 20170428
  Serious: Yes (Other)
  Sender: FDA-Public Use
  Company Number: ES-GILEAD-2017-0252116

PATIENT
  Age: 49 Year
  Sex: Female
  Weight: 65 kg

DRUGS (6)
  1. DARUNAVIR [Concomitant]
     Active Substance: DARUNAVIR
     Dates: start: 2010
  2. HARVONI [Suspect]
     Active Substance: LEDIPASVIR\SOFOSBUVIR
     Indication: HEPATITIS C
     Dosage: 1 DF, UNK
     Route: 048
     Dates: start: 20150721, end: 20151118
  3. LAMIVUDINA [Concomitant]
     Active Substance: LAMIVUDINE
     Route: 048
     Dates: start: 2013
  4. ETRAVIRINA [Concomitant]
     Dates: start: 2010
  5. RITONAVIR. [Concomitant]
     Active Substance: RITONAVIR
     Dates: start: 2010
  6. DIAZEPAM. [Concomitant]
     Active Substance: DIAZEPAM
     Dates: start: 2015

REACTIONS (2)
  - Renal impairment [Not Recovered/Not Resolved]
  - Proteinuria [Not Recovered/Not Resolved]

NARRATIVE: CASE EVENT DATE: 201510
